FAERS Safety Report 7604922-X (Version None)
Quarter: 2011Q3

REPORT INFORMATION
  Report Type: 
  Country: None (occurrence: None)
  Receive Date: 20110713
  Receipt Date: 20110702
  Transmission Date: 20111222
  Serious: Yes (Hospitalization, Other)
  Sender: FDA-Public Use
  Company Number: IN-PAR PHARMACEUTICAL, INC-2011SCPR003098

PATIENT

DRUGS (3)
  1. VANCOMYCIN HCL [Suspect]
     Indication: BRAIN NEOPLASM
     Dosage: 1 G, 12 HOURLY
     Route: 065
  2. DEXAMETHASONE [Suspect]
     Indication: BRAIN NEOPLASM
     Dosage: 2 G, 8 HOURLY
     Route: 065
  3. PHENYTOIN [Suspect]
     Indication: BRAIN NEOPLASM
     Dosage: 100 MG, 8 HOURLY
     Route: 065

REACTIONS (2)
  - STEVENS-JOHNSON SYNDROME [None]
  - RED MAN SYNDROME [None]
